FAERS Safety Report 23027313 (Version 1)
Quarter: 2023Q4

REPORT INFORMATION
  Report Type: Spontaneous
  Country: US (occurrence: None)
  Receive Date: 20231003
  Receipt Date: 20231003
  Transmission Date: 20240110
  Serious: Yes (Other)
  Sender: FDA-Public Use
  Company Number: None

PATIENT
  Sex: Female

DRUGS (25)
  1. TOLVAPTAN [Suspect]
     Active Substance: TOLVAPTAN
     Indication: Product used for unknown indication
     Dosage: 30 MG ORAL??TAKE ONE-HALF TABLET BY MOUTH EVERY OTHER DAY
     Route: 048
     Dates: start: 20220225
  2. ALPRAZOLAM [Concomitant]
     Active Substance: ALPRAZOLAM
  3. ATORVASTATIN [Concomitant]
     Active Substance: ATORVASTATIN
  4. BETHANECHOL [Concomitant]
     Active Substance: BETHANECHOL
  5. CLOPIDOGREL [Concomitant]
  6. CYMBALTA [Concomitant]
     Active Substance: DULOXETINE HYDROCHLORIDE
  7. FERROUS SULFATE [Concomitant]
     Active Substance: FERROUS SULFATE
  8. FLUTICASONE SPR [Concomitant]
  9. LAMICTAL [Concomitant]
  10. LISINOPRIL [Concomitant]
  11. MECLIZINE [Concomitant]
  12. METOCLOPRAM [Concomitant]
  13. MONTELUKAST [Concomitant]
  14. NEXIUM [Concomitant]
     Active Substance: ESOMEPRAZOLE MAGNESIUM
  15. PERCOCET [Concomitant]
  16. PERCOCET [Concomitant]
     Active Substance: ACETAMINOPHEN\OXYCODONE HYDROCHLORIDE
  17. PREGABALIN POW [Concomitant]
  18. REGLAN [Concomitant]
  19. RESTASIS EMU [Concomitant]
  20. SAMSCA [Concomitant]
     Active Substance: TOLVAPTAN
  21. SEROQUEL [Concomitant]
     Active Substance: QUETIAPINE FUMARATE
  22. SINGULAIR [Concomitant]
  23. VALACYCLOVIR [Concomitant]
  24. WAL-FEX ALLR [Concomitant]
  25. XANAX [Concomitant]
     Active Substance: ALPRAZOLAM

REACTIONS (1)
  - Cardiac failure [None]
